FAERS Safety Report 4865455-7 (Version None)
Quarter: 2005Q4

REPORT INFORMATION
  Report Type: 
  Country: None (occurrence: None)
  Receive Date: 20051220
  Receipt Date: 20051213
  Transmission Date: 20060501
  Serious: Yes (Other)
  Sender: FDA-Public Use
  Company Number: 200512972BWH

PATIENT
  Sex: Female

DRUGS (2)
  1. AVELOX [Suspect]
  2. PREDNISONE TAB [Suspect]

REACTIONS (1)
  - UNEVALUABLE EVENT [None]
